FAERS Safety Report 7436335 (Version 6)
Quarter: 2012Q4

REPORT INFORMATION
  Report Type: 
  Country: US (occurrence: US)
  Receive Date: 20100625
  Receipt Date: 20120918
  Transmission Date: 20130627
  Serious: Yes (Hospitalization)
  Sender: FDA-Public Use
  Company Number: US-BAYER-201025781NA

PATIENT
  Age: 26 Year
  Sex: Female
  Weight: 77 kg

DRUGS (11)
  1. YAZ [Suspect]
     Indication: CONTRACEPTION
     Dosage: UNK
     Dates: start: 2002, end: 2006
  2. YAZ [Suspect]
     Indication: ACNE
  3. YAZ [Suspect]
     Indication: PREMENSTRUAL SYNDROME
  4. YAZ [Suspect]
     Indication: MENSTRUAL CYCLE MANAGEMENT
  5. YASMIN [Suspect]
     Indication: CONTRACEPTION
     Dosage: UNK UNK, UNK
     Route: 048
     Dates: start: 2002, end: 2007
  6. YASMIN [Suspect]
     Indication: ACNE
  7. YASMIN [Suspect]
     Indication: PREMENSTRUAL SYNDROME
  8. YASMIN [Suspect]
     Indication: MENSTRUAL CYCLE MANAGEMENT
  9. DOXYCYCLINE [DOXYCYCLINE] [Concomitant]
     Indication: ACNE
     Dosage: UNK
     Dates: start: 1997
  10. ALEVE [Concomitant]
  11. LODINE [Concomitant]
     Indication: RHEUMATOID ARTHRITIS
     Dosage: 400 mg, UNK
     Route: 048
     Dates: start: 20070806

REACTIONS (6)
  - Pulmonary embolism [Unknown]
  - Chest pain [Unknown]
  - Dyspnoea [Unknown]
  - Dizziness [Unknown]
  - Atelectasis [Unknown]
  - Musculoskeletal chest pain [Unknown]
